FAERS Safety Report 26063478 (Version 1)
Quarter: 2025Q4

REPORT INFORMATION
  Report Type: Spontaneous
  Country: CN (occurrence: CN)
  Receive Date: 20251119
  Receipt Date: 20251119
  Transmission Date: 20260118
  Serious: Yes (Hospitalization)
  Sender: MACLEODS
  Company Number: CN-MACLEODS PHARMA-MAC2025056402

PATIENT

DRUGS (2)
  1. METHIMAZOLE [Suspect]
     Active Substance: METHIMAZOLE
     Indication: Hyperthyroidism
     Dosage: 15 MG  ONCE DAILY
     Route: 065
     Dates: start: 20241008
  2. Adenine phosphate [Concomitant]
     Indication: Hyperthyroidism
     Dosage: TABLETS 10 MG 3  TIMES A DAY (TID
     Route: 065
     Dates: start: 20241008

REACTIONS (5)
  - Lymphopenia [Recovered/Resolved]
  - Tonsillitis [Unknown]
  - Thyrotoxic crisis [Unknown]
  - Anaemia [Unknown]
  - Agranulocytosis [Recovered/Resolved]
